APPROVED DRUG PRODUCT: CONSENSI
Active Ingredient: AMLODIPINE BESYLATE; CELECOXIB
Strength: EQ 5MG BASE;200MG
Dosage Form/Route: TABLET;ORAL
Application: N210045 | Product #002
Applicant: PURPLE BIOTECH LTD
Approved: May 31, 2018 | RLD: Yes | RS: No | Type: DISCN

PATENTS:
Patent 10350171 | Expires: Jun 14, 2038